FAERS Safety Report 17758940 (Version 1)
Quarter: 2020Q2

REPORT INFORMATION
  Report Type: Report from Study
  Country: SA (occurrence: SA)
  Receive Date: 20200508
  Receipt Date: 20200508
  Transmission Date: 20200714
  Serious: Yes (Other)
  Sender: FDA-Public Use
  Company Number: SA-CELLTRION INC.-2019SA027133

PATIENT

DRUGS (12)
  1. AZATHIOPRINE. [Concomitant]
     Active Substance: AZATHIOPRINE
     Dosage: 50 MG (50 MG,1 IN 1 D)
     Route: 048
  2. REMSIMA [Suspect]
     Active Substance: INFLIXIMAB
     Dosage: 275 MG
     Route: 042
     Dates: start: 20190528
  3. PREDNISOLONE. [Concomitant]
     Active Substance: PREDNISOLONE
     Indication: COLITIS ULCERATIVE
     Dosage: 5 MG,6 TABLETS, ONCE DAILY
     Route: 048
     Dates: start: 20191114
  4. REMSIMA [Suspect]
     Active Substance: INFLIXIMAB
     Indication: COLITIS ULCERATIVE
     Dosage: 275 MG, AT WEEKS 0, 2, 6, AND EVERY 8 WEEKS THEREAFTER (STRENGHT: 100 MG, INFUSION) (V2)
     Route: 042
     Dates: start: 20190513
  5. REMSIMA [Suspect]
     Active Substance: INFLIXIMAB
     Dosage: 500 MG
     Route: 042
     Dates: start: 20190820
  6. AZATHIOPRINE. [Concomitant]
     Active Substance: AZATHIOPRINE
     Indication: COLITIS ULCERATIVE
     Dosage: 150 MG (150 MG, 3 IN 1 D)
     Route: 048
     Dates: start: 20190513
  7. MESALAZINE [Concomitant]
     Active Substance: MESALAMINE
     Indication: COLITIS ULCERATIVE
     Dosage: 3 GM (1 G, 3 IN 1D OR THREE TIMES DAILY)
     Route: 048
     Dates: start: 20190513, end: 20191127
  8. REMSIMA [Suspect]
     Active Substance: INFLIXIMAB
     Dosage: 500 MG
     Route: 042
     Dates: start: 20200121
  9. REMSIMA [Suspect]
     Active Substance: INFLIXIMAB
     Dosage: 600 MG
     Route: 042
     Dates: start: 20191015
  10. REMSIMA [Suspect]
     Active Substance: INFLIXIMAB
     Dosage: 500 MG
     Route: 042
     Dates: start: 20191210
  11. REMSIMA [Suspect]
     Active Substance: INFLIXIMAB
     Dosage: 300 MG
     Route: 042
     Dates: start: 20190625
  12. MESALAZINE [Concomitant]
     Active Substance: MESALAMINE
     Dosage: 2GM (1 GM, 2 IN 1 D OR TWICE DAILY)
     Route: 048
     Dates: start: 20191128

REACTIONS (5)
  - Neutropenia [Recovering/Resolving]
  - Pancytopenia [Recovering/Resolving]
  - Leukopenia [Recovering/Resolving]
  - Overdose [Unknown]
  - Aplastic anaemia [Recovering/Resolving]

NARRATIVE: CASE EVENT DATE: 20190526
